FAERS Safety Report 24133376 (Version 2)
Quarter: 2024Q3

REPORT INFORMATION
  Report Type: Spontaneous
  Country: US (occurrence: US)
  Receive Date: 20240724
  Receipt Date: 20240806
  Transmission Date: 20241017
  Serious: Yes (Other)
  Sender: ABBVIE
  Company Number: US-ABBVIE-5848676

PATIENT
  Age: 25 Year
  Sex: Male

DRUGS (1)
  1. DALVANCE [Suspect]
     Active Substance: DALBAVANCIN
     Indication: Cellulitis
     Dosage: TIME INTERVAL: AS NECESSARY: FREQUENCY: 1 IN ONCE
     Route: 042
     Dates: start: 20240708, end: 20240708

REACTIONS (2)
  - Abscess [Unknown]
  - Urticaria [Unknown]

NARRATIVE: CASE EVENT DATE: 20240708
